FAERS Safety Report 4430454-6 (Version None)
Quarter: 2004Q3

REPORT INFORMATION
  Report Type: 
  Country: None (occurrence: None)
  Receive Date: 20040721
  Receipt Date: 20040113
  Transmission Date: 20050211
  Serious: Yes (Other)
  Sender: FDA-Public Use
  Company Number: WAES0302USA00100

PATIENT
  Sex: Female
  Weight: 68.0396 kg

DRUGS (1)
  1. VIOXX [Suspect]
     Indication: RHEUMATOID ARTHRITIS
     Dosage: PO
     Route: 048
     Dates: start: 20000101, end: 20010911

REACTIONS (3)
  - FIBROMYALGIA [None]
  - GASTRIC HAEMORRHAGE [None]
  - THROMBOSIS [None]
